FAERS Safety Report 4445044-9 (Version None)
Quarter: 2004Q3

REPORT INFORMATION
  Report Type: 
  Country: None (occurrence: None)
  Receive Date: 20040903
  Receipt Date: 20040819
  Transmission Date: 20050211
  Serious: Yes (Other)
  Sender: FDA-Public Use
  Company Number: 2004S1000064

PATIENT
  Age: 36 Year
  Sex: Female
  Weight: 74.8435 kg

DRUGS (3)
  1. SORIATANE [Suspect]
     Indication: ICHTHYOSIS ACQUIRED
     Dosage: 25 MG PO
     Route: 048
  2. BENADRYL [Concomitant]
  3. IBUPROFEN [Concomitant]

REACTIONS (9)
  - ABASIA [None]
  - ALOPECIA [None]
  - BACK PAIN [None]
  - BONE DISORDER [None]
  - HAIR TEXTURE ABNORMAL [None]
  - INTERVERTEBRAL DISC DISORDER [None]
  - ROAD TRAFFIC ACCIDENT [None]
  - SPINAL COLUMN STENOSIS [None]
  - SPINAL DEFORMITY [None]
